FAERS Safety Report 22398436 (Version 2)
Quarter: 2023Q2

REPORT INFORMATION
  Report Type: Report from Study
  Country: SE (occurrence: None)
  Receive Date: 20230602
  Receipt Date: 20230608
  Transmission Date: 20230721
  Serious: Yes (Other)
  Sender: FDA-Public Use
  Company Number: SE-ROCHE-3360002

PATIENT
  Age: 77 Year
  Sex: Male

DRUGS (8)
  1. OBINUTUZUMAB [Suspect]
     Active Substance: OBINUTUZUMAB
     Indication: Chronic lymphocytic leukaemia
     Dosage: LAST DOSE GIVEN ON 13/SEP/2022.
     Route: 042
     Dates: start: 20220425
  2. VENETOCLAX [Suspect]
     Active Substance: VENETOCLAX
     Indication: Chronic lymphocytic leukaemia
     Dosage: LAST DOSE GIVEN ON 26/MAR/2023.
     Route: 048
     Dates: start: 20220517
  3. METOPROLOL [Concomitant]
     Active Substance: METOPROLOL
  4. MAGNESIUM HYDROXIDE [Concomitant]
     Active Substance: MAGNESIUM HYDROXIDE
  5. ALLOPURINOL [Concomitant]
     Active Substance: ALLOPURINOL
  6. FURIX (SWEDEN) [Concomitant]
  7. ACETAMINOPHEN [Concomitant]
     Active Substance: ACETAMINOPHEN
  8. COCILLANA [ETHYLMORPHINE HYDROCHLORIDE] [Concomitant]

REACTIONS (1)
  - Malignant melanoma [Recovered/Resolved]

NARRATIVE: CASE EVENT DATE: 20230329
